FAERS Safety Report 6920376-0 (Version None)
Quarter: 2010Q3

REPORT INFORMATION
  Report Type: 
  Country: None (occurrence: None)
  Receive Date: 20100804
  Receipt Date: 20100607
  Transmission Date: 20110219
  Serious: No
  Sender: FDA-Public Use
  Company Number: 2010-00471

PATIENT
  Age: 62 Year
  Sex: Female
  Weight: 79.3795 kg

DRUGS (2)
  1. ZICAM COLD REMEDY GEL SWABS [Suspect]
     Dosage: QID, SPORADIC USE
     Dates: start: 20081101, end: 20081101
  2. LEVOTHYROXINE [Concomitant]

REACTIONS (1)
  - ANOSMIA [None]
